FAERS Safety Report 12329979 (Version 1)
Quarter: 2016Q2

REPORT INFORMATION
  Report Type: Spontaneous
  Country: ES (occurrence: ES)
  Receive Date: 20160504
  Receipt Date: 20160504
  Transmission Date: 20160815
  Serious: Yes (Other)
  Sender: FDA-Public Use
  Company Number: PHHY2016ES058266

PATIENT
  Age: 82 Year
  Sex: Female

DRUGS (2)
  1. PROMETAX [Suspect]
     Active Substance: RIVASTIGMINE
     Indication: PRESENILE DEMENTIA
     Dosage: 9.5 MG, QD
     Route: 062
     Dates: start: 201509, end: 20160304
  2. ENALAPRIL [Concomitant]
     Active Substance: ENALAPRIL
     Indication: HYPERTENSION
     Dosage: 20 MG, QD
     Route: 048
     Dates: start: 20120618

REACTIONS (3)
  - Dermatitis bullous [Recovered/Resolved]
  - Pruritus [Recovered/Resolved]
  - Fixed drug eruption [Recovered/Resolved]

NARRATIVE: CASE EVENT DATE: 20160212
